FAERS Safety Report 7232655-0 (Version None)
Quarter: 2010Q4

REPORT INFORMATION
  Report Type: 
  Country: None (occurrence: None)
  Receive Date: 20101221
  Receipt Date: 20101221
  Transmission Date: 20110411
  Serious: Yes (Hospitalization)
  Sender: FDA-Public Use
  Company Number: None

PATIENT
  Age: 74 Year
  Sex: Male
  Weight: 112.9457 kg

DRUGS (2)
  1. PROPOXYPHENE HCL AND ACETAMINOPHEN [Suspect]
     Indication: HEADACHE
     Dosage: 1 TABLET EVERY 8-12 HOURS MOUTH AS NEED FOR PAIN OBLONG-PINK 93 FRONT 890 BACK
     Route: 048
     Dates: start: 20080101, end: 20101129
  2. PROPOXYPHENE HCL AND ACETAMINOPHEN [Suspect]
     Indication: NECK PAIN
     Dosage: 1 TABLET EVERY 8-12 HOURS MOUTH AS NEED FOR PAIN OBLONG-PINK 93 FRONT 890 BACK
     Route: 048
     Dates: start: 20080101, end: 20101129

REACTIONS (2)
  - BLOOD PRESSURE INCREASED [None]
  - EXTRASYSTOLES [None]
